FAERS Safety Report 4763275-5 (Version None)
Quarter: 2005Q3

REPORT INFORMATION
  Report Type: 
  Country: None (occurrence: None)
  Receive Date: 20050902
  Receipt Date: 20050820
  Transmission Date: 20060218
  Serious: Yes (Hospitalization)
  Sender: FDA-Public Use
  Company Number: MK200508-0350-1

PATIENT
  Age: 40 Year
  Sex: Male

DRUGS (1)
  1. OPTIRAY 300 [Suspect]
     Indication: COMPUTERISED TOMOGRAM THORAX
     Dosage: 62 ML, ONCE TIME, IV
     Route: 042
     Dates: start: 20050820, end: 20050820

REACTIONS (6)
  - CONTRAST MEDIA REACTION [None]
  - DIZZINESS [None]
  - DYSPNOEA [None]
  - LOSS OF CONSCIOUSNESS [None]
  - RASH GENERALISED [None]
  - URTICARIA [None]
